FAERS Safety Report 21354082 (Version 1)
Quarter: 2022Q3

REPORT INFORMATION
  Report Type: Spontaneous
  Country: JP (occurrence: JP)
  Receive Date: 20220920
  Receipt Date: 20220920
  Transmission Date: 20221027
  Serious: Yes (Death)
  Sender: FDA-Public Use
  Company Number: JP-NOVARTISPH-NVSJ2022JP097822

PATIENT

DRUGS (1)
  1. CERTICAN [Suspect]
     Active Substance: EVEROLIMUS
     Indication: Renal transplant
     Dosage: UNK
     Route: 048

REACTIONS (1)
  - COVID-19 [Fatal]
